FAERS Safety Report 10336403 (Version 1)
Quarter: 2014Q3

REPORT INFORMATION
  Report Type: Spontaneous
  Country: US (occurrence: US)
  Receive Date: 20140723
  Receipt Date: 20140723
  Transmission Date: 20150326
  Serious: No
  Sender: FDA-Public Use
  Company Number: US-BRISTOL-MYERS SQUIBB COMPANY-20573226

PATIENT
  Age: 70 Year
  Sex: Female
  Weight: 49.89 kg

DRUGS (13)
  1. OMEPRAZOLE. [Concomitant]
     Active Substance: OMEPRAZOLE
     Indication: GASTROOESOPHAGEAL REFLUX DISEASE
  2. METFORMIN HCL [Concomitant]
     Active Substance: METFORMIN HYDROCHLORIDE
     Indication: BLOOD GLUCOSE
  3. DOFETILIDE [Concomitant]
     Active Substance: DOFETILIDE
     Indication: HEART RATE IRREGULAR
  4. SIMVASTATIN. [Concomitant]
     Active Substance: SIMVASTATIN
     Indication: BLOOD CHOLESTEROL
  5. LISINOPRIL. [Concomitant]
     Active Substance: LISINOPRIL
     Indication: BLOOD PRESSURE
  6. TIKOSYN [Concomitant]
     Active Substance: DOFETILIDE
     Indication: HEART RATE IRREGULAR
  7. MULTIVITAMIN [Concomitant]
     Active Substance: VITAMINS
  8. TIKOSYN [Concomitant]
     Active Substance: DOFETILIDE
     Indication: ATRIAL FIBRILLATION
  9. DOFETILIDE [Concomitant]
     Active Substance: DOFETILIDE
     Indication: ATRIAL FIBRILLATION
  10. COUMADIN [Suspect]
     Active Substance: WARFARIN SODIUM
     Dates: start: 201402, end: 201402
  11. ASPIRIN. [Concomitant]
     Active Substance: ASPIRIN
     Indication: CARDIAC DISORDER
  12. LYRICA [Concomitant]
     Active Substance: PREGABALIN
     Dosage: 1-2 CAPS PER 1DAY
  13. NOVOLIN [Concomitant]
     Active Substance: INSULIN HUMAN
     Indication: BLOOD GLUCOSE
     Dosage: 1DF=43 UNITS IN AM /33 UNITS IN PM

REACTIONS (1)
  - Faeces discoloured [Recovered/Resolved]

NARRATIVE: CASE EVENT DATE: 201402
